FAERS Safety Report 4781017-4 (Version None)
Quarter: 2005Q3

REPORT INFORMATION
  Report Type: 
  Country: None (occurrence: None)
  Receive Date: 20050926
  Receipt Date: 20050913
  Transmission Date: 20060218
  Serious: Yes (Other)
  Sender: FDA-Public Use
  Company Number: L05-UKI-03335-01

PATIENT
  Sex: Male

DRUGS (1)
  1. CARBAMAZEPINE [Suspect]

REACTIONS (7)
  - AUTISM SPECTRUM DISORDER [None]
  - CLEFT UVULA [None]
  - CONGENITAL NAIL DISORDER [None]
  - DRUG EXPOSURE DURING PREGNANCY [None]
  - INGUINAL HERNIA [None]
  - MULTIPLE CONGENITAL ABNORMALITIES [None]
  - SPEECH DISORDER DEVELOPMENTAL [None]
